FAERS Safety Report 18778602 (Version 1)
Quarter: 2021Q1

REPORT INFORMATION
  Report Type: Spontaneous
  Country: US (occurrence: US)
  Receive Date: 20210124
  Receipt Date: 20210124
  Transmission Date: 20210419
  Serious: Yes (Hospitalization)
  Sender: FDA-Public Use
  Company Number: US-TEVA-2021-US-1870005

PATIENT
  Age: 67 Year
  Sex: Female

DRUGS (5)
  1. VORICONAZOLE. [Suspect]
     Active Substance: VORICONAZOLE
     Indication: BLASTOMYCOSIS
     Dosage: 400 MILLIGRAM DAILY;
     Route: 048
  2. FLUTICASONE?PROPIONATE [Suspect]
     Active Substance: FLUTICASONE PROPIONATE
     Indication: RHINITIS ALLERGIC
     Route: 055
  3. VORICONAZOLE. [Suspect]
     Active Substance: VORICONAZOLE
     Indication: BLASTOMYCOSIS
     Dosage: 800 MILLIGRAM DAILY; FOR 2 DAYS
     Route: 048
  4. FLUTICASONE?PROPIONATE [Interacting]
     Active Substance: FLUTICASONE PROPIONATE
  5. ITRACONAZOLE. [Interacting]
     Active Substance: ITRACONAZOLE
     Indication: BLASTOMYCOSIS
     Dosage: 400 MILLIGRAM DAILY;
     Route: 048

REACTIONS (9)
  - Blastomycosis [Recovered/Resolved]
  - Oedema [Unknown]
  - Rosacea [Unknown]
  - Nausea [Unknown]
  - Dysaesthesia [Unknown]
  - Hypertension [Unknown]
  - Alanine aminotransferase increased [Unknown]
  - Hypoaesthesia [Unknown]
  - Drug interaction [Unknown]
